FAERS Safety Report 8695842 (Version 2)
Quarter: 2012Q4

REPORT INFORMATION
  Report Type: 
  Country: US (occurrence: US)
  Receive Date: 20120731
  Receipt Date: 20121009
  Transmission Date: 20130627
  Serious: Yes (Other)
  Sender: FDA-Public Use
  Company Number: US-ELI_LILLY_AND_COMPANY-US201207005591

PATIENT
  Age: 59 Year
  Sex: Female

DRUGS (8)
  1. CYMBALTA [Suspect]
     Indication: BACK PAIN
     Dosage: 60 mg, unknown
     Dates: start: 201112
  2. CYMBALTA [Suspect]
     Dosage: 30 mg, unknown
  3. CYMBALTA [Suspect]
     Dosage: 60 mg, unknown
  4. CYMBALTA [Suspect]
     Dosage: 30 mg, UNK
  5. CYMBALTA [Suspect]
     Dosage: 60 mg, UNK
  6. VICODIN [Concomitant]
  7. VAGIFEM [Concomitant]
  8. COUMADIN [Concomitant]

REACTIONS (28)
  - Appendicitis [Unknown]
  - Oophorectomy [Unknown]
  - Stomatitis [Recovered/Resolved]
  - Tongue blistering [Unknown]
  - Weight increased [Unknown]
  - Weight decreased [Unknown]
  - Throat tightness [Unknown]
  - Oropharyngeal pain [Unknown]
  - Thyroid neoplasm [Unknown]
  - Blood cholesterol increased [Unknown]
  - Low density lipoprotein increased [Unknown]
  - Anxiety [Unknown]
  - Feeling jittery [Unknown]
  - Tachyphrenia [Not Recovered/Not Resolved]
  - Nausea [Unknown]
  - Feeling hot [Unknown]
  - Piloerection [Unknown]
  - Hyperhidrosis [Unknown]
  - Abdominal pain upper [Unknown]
  - Bacterial infection [Unknown]
  - Goitre [Unknown]
  - Eating disorder symptom [Unknown]
  - Neck pain [Unknown]
  - Fatigue [Not Recovered/Not Resolved]
  - Somnolence [Not Recovered/Not Resolved]
  - Feeling abnormal [Not Recovered/Not Resolved]
  - Personality change [Not Recovered/Not Resolved]
  - Anger [Not Recovered/Not Resolved]
